FAERS Safety Report 11734302 (Version 1)
Quarter: 2015Q4

REPORT INFORMATION
  Report Type: Spontaneous
  Country: US (occurrence: US)
  Receive Date: 20151113
  Receipt Date: 20151113
  Transmission Date: 20160304
  Serious: Yes (Hospitalization)
  Sender: FDA-Public Use
  Company Number: US-HOSPIRA-3078204

PATIENT
  Age: 72 Year
  Sex: Male

DRUGS (13)
  1. INOTUZUMAB OZOGAMICIN [Concomitant]
     Active Substance: INOTUZUMAB OZOGAMICIN
     Indication: ACUTE LYMPHOCYTIC LEUKAEMIA
     Dosage: OVER 1 HOUR ON DAY 3 OF CYCLE 1, 3, 5, 7
     Route: 042
     Dates: start: 20150801
  2. METHOTREXATE [Suspect]
     Active Substance: METHOTREXATE
     Indication: PRODUCT USED FOR UNKNOWN INDICATION
     Dosage: OVER 2 HOURS ON DAY 1, CYCLE 2, 4, 6, 8
     Route: 042
  3. MESNA. [Concomitant]
     Active Substance: MESNA
     Indication: PRODUCT USED FOR UNKNOWN INDICATION
     Dosage: DAILY, OVER 24 HOURS, FOR 3 DAYS ON DAYS 1 TO 3 OF CYCLE 1, 3, 5, 7
     Route: 042
  4. CYTARABINE. [Suspect]
     Active Substance: CYTARABINE
     Indication: PRODUCT USED FOR UNKNOWN INDICATION
     Dosage: 0.5 G/M2, OVER 3 HOURS TWICE A DAY, X 4 DOSES ON DAYS 2 AND 3, CYCLE 2, 4, 6, 8
     Route: 042
  5. DEXAMETHASONE. [Concomitant]
     Active Substance: DEXAMETHASONE
     Indication: PRODUCT USED FOR UNKNOWN INDICATION
     Dosage: DAILY FOR 4 DAYS ON DAYS 1 TO 4 AND DAYS 11 TO 14, CYCLE 1, 3, 5, 7
     Route: 042
  6. CYCLOPHOSPHAMIDE. [Concomitant]
     Active Substance: CYCLOPHOSPHAMIDE
     Indication: PRODUCT USED FOR UNKNOWN INDICATION
     Dosage: OVER 3 HOURS, TWICE A DAY ON DAYS 1 TO 3 OF CYCLE 1, 3, 5, 7
     Route: 042
  7. VINCRISTINE SULFATE. [Suspect]
     Active Substance: VINCRISTINE SULFATE
     Indication: PRODUCT USED FOR UNKNOWN INDICATION
     Dosage: ON DAY 1 AND DAY 8, CYCLE 1, 3, 5, 7
     Route: 042
  8. RITUXIMAB [Concomitant]
     Active Substance: RITUXIMAB
     Indication: PRODUCT USED FOR UNKNOWN INDICATION
     Dosage: ON DAY 2 AND DAY 8 (CYCLE 1 AND 3 ONLY)
     Route: 042
  9. METHOTREXATE [Suspect]
     Active Substance: METHOTREXATE
     Indication: PRODUCT USED FOR UNKNOWN INDICATION
     Dosage: CONTINUOUS INFUSION OVER 22 HOURS ON DAY 1, CYCLE 2, 4, 6, 8
     Route: 041
  10. INOTUZUMAB OZOGAMICIN [Concomitant]
     Active Substance: INOTUZUMAB OZOGAMICIN
     Indication: ACUTE LYMPHOCYTIC LEUKAEMIA
     Dosage: ON DAY 2 OR 3 (CYCLES 2 AND 4 ONLY)
     Route: 042
  11. PEGFILGRASTIM [Concomitant]
     Active Substance: PEGFILGRASTIM
     Indication: PRODUCT USED FOR UNKNOWN INDICATION
     Dosage: (OR FILGRASTIM 5 TO 10 MCG/KG, DAILY) ON DAY 4, CYCLE 1, 3, 5, 7
     Route: 058
  12. PEGFILGRASTIM [Concomitant]
     Active Substance: PEGFILGRASTIM
     Indication: PRODUCT USED FOR UNKNOWN INDICATION
     Dosage: (OR FILGRASTIM 5 TO 10 MCG/KG, DAILY) ON DAY 4, CYCLE 2, 4, 6, 8
     Route: 058
  13. RITUXIMAB [Concomitant]
     Active Substance: RITUXIMAB
     Indication: PRODUCT USED FOR UNKNOWN INDICATION
     Dosage: ON DAY 2 AND DAY 8 OF CYCLES 2 AND 4
     Route: 042

REACTIONS (1)
  - Hypertension [Recovered/Resolved]

NARRATIVE: CASE EVENT DATE: 20151003
